FAERS Safety Report 6146291-0 (Version None)
Quarter: 2009Q2

REPORT INFORMATION
  Report Type: 
  Country: None (occurrence: None)
  Receive Date: 20090403
  Receipt Date: 20090403
  Transmission Date: 20091009
  Serious: Yes (Hospitalization)
  Sender: FDA-Public Use
  Company Number: None

PATIENT
  Sex: Male
  Weight: 64.36 kg

DRUGS (2)
  1. CISPLATIN [Suspect]
     Dosage: 130 MG
     Dates: end: 20080528
  2. TAXOTERE [Suspect]
     Dosage: 130 MG
     Dates: end: 20080528

REACTIONS (12)
  - BLOOD PRESSURE SYSTOLIC DECREASED [None]
  - CHILLS [None]
  - DYSPNOEA [None]
  - HYPOTENSION [None]
  - LEUKOCYTOSIS [None]
  - LUNG INFILTRATION [None]
  - MALAISE [None]
  - NAUSEA [None]
  - PNEUMONIA ASPIRATION [None]
  - PNEUMONITIS [None]
  - PRODUCTIVE COUGH [None]
  - PYREXIA [None]
